FAERS Safety Report 5258737-0 (Version None)
Quarter: 2007Q1

REPORT INFORMATION
  Report Type: 
  Country: None (occurrence: None)
  Receive Date: 20061117
  Receipt Date: 20060418
  Transmission Date: 20070707
  Serious: Yes (Other)
  Sender: FDA-Public Use
  Company Number: US-JNJFOC-20060104775

PATIENT
  Age: 52 Year
  Sex: Female
  Weight: 49.0792 kg

DRUGS (6)
  1. LEVAQUIN [Suspect]
     Indication: PNEUMONIA
     Dosage: 500 MG,  1 IN 1 DAY, ORAL
     Route: 048
     Dates: start: 20041228, end: 20050105
  2. PHENOBARBITAL TAB [Concomitant]
  3. CARBAMAZEPINE [Concomitant]
  4. MEDROXYPROGESTERONE [Concomitant]
  5. DILANTIN [Concomitant]
  6. ESTROGEN (ESTROGEN NOS) [Concomitant]

REACTIONS (1)
  - HEPATIC ENZYME INCREASED [None]
